FAERS Safety Report 4637453-X (Version None)
Quarter: 2005Q1

REPORT INFORMATION
  Report Type: 
  Country: None (occurrence: None)
  Receive Date: 20050325
  Receipt Date: 20041207
  Transmission Date: 20050727
  Serious: No
  Sender: FDA-Public Use
  Company Number: USA041285465

PATIENT
  Age: 60 Year
  Sex: Female

DRUGS (2)
  1. FORTEO [Suspect]
     Indication: OSTEOPOROSIS
     Dates: start: 20040601
  2. BEXTRA [Concomitant]

REACTIONS (5)
  - CATARACT [None]
  - LOWER RESPIRATORY TRACT INFECTION [None]
  - MOVEMENT DISORDER [None]
  - NERVOUSNESS [None]
  - RESPIRATORY TRACT CONGESTION [None]
